FAERS Safety Report 20378139 (Version 1)
Quarter: 2022Q1

REPORT INFORMATION
  Report Type: Other
  Country: US (occurrence: None)
  Receive Date: 20220126
  Receipt Date: 20220126
  Transmission Date: 20220423
  Serious: Yes (Other)
  Sender: FDA-Public Use
  Company Number: US-ROCHE-3003909

PATIENT
  Sex: Male

DRUGS (1)
  1. XELODA [Suspect]
     Active Substance: CAPECITABINE
     Indication: Colorectal cancer metastatic
     Dosage: 2 TIMES PER DAY, FOR 21 DAY(S), THEN OFF 7 DAY(S),TABLES/CYCLE: 150,CYCLES/FILL: 1
     Route: 048

REACTIONS (2)
  - Neoplasm progression [Unknown]
  - Illness [Unknown]
